FAERS Safety Report 6911334-0 (Version None)
Quarter: 2010Q3

REPORT INFORMATION
  Report Type: 
  Country: None (occurrence: None)
  Receive Date: 20100719
  Receipt Date: 20100517
  Transmission Date: 20110219
  Serious: Yes (Hospitalization, Other)
  Sender: FDA-Public Use
  Company Number: US-WYE-H15209710

PATIENT
  Age: 33 Year
  Sex: Male
  Weight: 59.02 kg

DRUGS (1)
  1. ADVIL [Suspect]
     Indication: ABDOMINAL PAIN
     Dosage: 2 TABLET 1X PER 1 DAY, ORAL
     Route: 048
     Dates: start: 20100505, end: 20100505

REACTIONS (2)
  - ABDOMINAL PAIN [None]
  - CONDITION AGGRAVATED [None]
